FAERS Safety Report 6112666-9 (Version None)
Quarter: 2009Q1

REPORT INFORMATION
  Report Type: 
  Country: None (occurrence: None)
  Receive Date: 20090312
  Receipt Date: 20090306
  Transmission Date: 20090719
  Serious: Yes (Other)
  Sender: FDA-Public Use
  Company Number: US-ASTRAZENECA-2009UW06076

PATIENT
  Age: 79 Year
  Sex: Male

DRUGS (1)
  1. NEXIUM [Suspect]
     Indication: GASTROOESOPHAGEAL REFLUX DISEASE
     Route: 048
     Dates: start: 20080901

REACTIONS (4)
  - ANGINA PECTORIS [None]
  - CATHETERISATION CARDIAC [None]
  - HEART RATE INCREASED [None]
  - STENT PLACEMENT [None]
